FAERS Safety Report 12968076 (Version 2)
Quarter: 2017Q1

REPORT INFORMATION
  Report Type: Spontaneous
  Country: CH (occurrence: CH)
  Receive Date: 20161123
  Receipt Date: 20170118
  Transmission Date: 20170428
  Serious: Yes (Death)
  Sender: FDA-Public Use
  Company Number: PHHY2016CH157084

PATIENT
  Age: 75 Year
  Sex: Male

DRUGS (4)
  1. GEMCITABINE [Suspect]
     Active Substance: GEMCITABINE\GEMCITABINE HYDROCHLORIDE
     Indication: BILIARY CANCER METASTATIC
     Dosage: CYCLIC
     Route: 065
     Dates: start: 20160401, end: 20160530
  2. FLUOROURACIL SANDOZ [Suspect]
     Active Substance: FLUOROURACIL
     Indication: BILIARY CANCER METASTATIC
     Dosage: CYCLIC
     Route: 065
     Dates: start: 201606, end: 201607
  3. CISPLATIN. [Suspect]
     Active Substance: CISPLATIN
     Indication: BILIARY CANCER METASTATIC
     Dosage: CYCLIC
     Route: 065
     Dates: start: 20160401, end: 20160530
  4. OXALIPLATIN. [Suspect]
     Active Substance: OXALIPLATIN
     Indication: BILIARY CANCER METASTATIC
     Dosage: CYCLIC
     Route: 065
     Dates: start: 201606, end: 201607

REACTIONS (4)
  - Ascites [Fatal]
  - Jaundice [Fatal]
  - Biliary cancer metastatic [Fatal]
  - Disease progression [Fatal]
